FAERS Safety Report 6082360-1 (Version None)
Quarter: 2009Q1

REPORT INFORMATION
  Report Type: 
  Country: None (occurrence: None)
  Receive Date: 20090130
  Receipt Date: 20080430
  Transmission Date: 20090719
  Serious: Yes (Other)
  Sender: FDA-Public Use
  Company Number: 8031585

PATIENT
  Age: 42 Year
  Sex: Female
  Weight: 81.81 kg

DRUGS (3)
  1. KEPPRA [Suspect]
     Dates: start: 20070701, end: 20070901
  2. REBIF [Suspect]
     Dosage: 44 MCG 3/W SC
     Route: 058
     Dates: start: 20080302
  3. ORTHO-NOVUM [Concomitant]

REACTIONS (1)
  - PANCREATITIS [None]
